FAERS Safety Report 4523028-X (Version None)
Quarter: 2004Q4

REPORT INFORMATION
  Report Type: 
  Country: None (occurrence: None)
  Receive Date: 20041210
  Receipt Date: 20041201
  Transmission Date: 20050328
  Serious: Yes (Hospitalization)
  Sender: FDA-Public Use
  Company Number: US-ABBOTT-04P-163-0282197-00

PATIENT
  Sex: Female

DRUGS (6)
  1. HUMIRA [Suspect]
     Indication: RHEUMATOID ARTHRITIS
     Route: 058
     Dates: start: 20040501, end: 20041022
  2. HUMIRA [Suspect]
     Route: 058
     Dates: start: 20041105
  3. HCT [Concomitant]
     Indication: BLOOD PRESSURE
     Route: 048
  4. HYDROCODONE [Concomitant]
     Indication: PAIN
     Route: 048
  5. HYDROXYZINE [Concomitant]
     Indication: INSOMNIA
     Route: 048
  6. SULFA SALAX [Concomitant]
     Indication: DRUG USE FOR UNKNOWN INDICATION
     Dosage: 3 IN THE MORNING, 3 IN THE EVENING
     Route: 048
     Dates: start: 20041013

REACTIONS (6)
  - CHEST PAIN [None]
  - DIZZINESS [None]
  - DYSPNOEA [None]
  - PAIN IN EXTREMITY [None]
  - PAIN IN JAW [None]
  - PERITONITIS [None]
